FAERS Safety Report 25659483 (Version 1)
Quarter: 2025Q3

REPORT INFORMATION
  Report Type: Spontaneous
  Country: US (occurrence: US)
  Receive Date: 20250808
  Receipt Date: 20250808
  Transmission Date: 20251021
  Serious: Yes (Hospitalization)
  Sender: MYLAN
  Company Number: US-MYLANLABS-2025M1065721

PATIENT
  Age: 30 Year
  Sex: Female

DRUGS (3)
  1. ESTRADIOL [Suspect]
     Active Substance: ESTRADIOL
     Indication: Endometriosis
  2. RELUGOLIX [Suspect]
     Active Substance: RELUGOLIX
     Indication: Endometriosis
  3. NORETHINDRONE [Suspect]
     Active Substance: NORETHINDRONE
     Indication: Endometriosis

REACTIONS (2)
  - Drug ineffective for unapproved indication [Unknown]
  - Off label use [Unknown]
